FAERS Safety Report 6132358-X (Version None)
Quarter: 2009Q1

REPORT INFORMATION
  Report Type: 
  Country: None (occurrence: None)
  Receive Date: 20090325
  Receipt Date: 20090313
  Transmission Date: 20090719
  Serious: Yes (Hospitalization, Other)
  Sender: FDA-Public Use
  Company Number: US-PFIZER INC-2008034062

PATIENT
  Sex: Male

DRUGS (1)
  1. CHAMPIX [Suspect]
     Dosage: UNK
     Dates: start: 20080301

REACTIONS (7)
  - DEHYDRATION [None]
  - GLUCOSE TOLERANCE IMPAIRED [None]
  - HYPERTENSION [None]
  - MYOCARDIAL INFARCTION [None]
  - OVERWEIGHT [None]
  - ROAD TRAFFIC ACCIDENT [None]
  - VIOLENCE-RELATED SYMPTOM [None]
